FAERS Safety Report 24986721 (Version 1)
Quarter: 2025Q1

REPORT INFORMATION
  Report Type: Spontaneous
  Country: US (occurrence: US)
  Receive Date: 20250219
  Receipt Date: 20250219
  Transmission Date: 20250408
  Serious: No
  Sender: BAUSCH AND LOMB
  Company Number: US-BAUSCH-BL-2025-001826

PATIENT
  Sex: Female

DRUGS (1)
  1. BENZOYL PEROXIDE\ERYTHROMYCIN [Suspect]
     Active Substance: BENZOYL PEROXIDE\ERYTHROMYCIN
     Indication: Product used for unknown indication
     Route: 061

REACTIONS (5)
  - Application site pain [Unknown]
  - Application site pruritus [Unknown]
  - Product physical consistency issue [Unknown]
  - Wrong technique in product usage process [Unknown]
  - Patient dissatisfaction with treatment [Unknown]
